FAERS Safety Report 5318694-5 (Version None)
Quarter: 2007Q2

REPORT INFORMATION
  Report Type: 
  Country: None (occurrence: None)
  Receive Date: 20070508
  Receipt Date: 20070430
  Transmission Date: 20071010
  Serious: Yes (Other)
  Sender: FDA-Public Use
  Company Number: US-BRISTOL-MYERS SQUIBB COMPANY-13770425

PATIENT

DRUGS (2)
  1. REYATAZ [Suspect]
  2. RITONAVIR [Concomitant]

REACTIONS (1)
  - RENAL FAILURE ACUTE [None]
